FAERS Safety Report 4985765-2 (Version None)
Quarter: 2006Q2

REPORT INFORMATION
  Report Type: 
  Country: None (occurrence: None)
  Receive Date: 20060421
  Receipt Date: 20060411
  Transmission Date: 20061013
  Serious: Yes (Hospitalization, Other)
  Sender: FDA-Public Use
  Company Number: DEWYE507827MAR06

PATIENT
  Age: 23 Year
  Sex: Female

DRUGS (1)
  1. VENLAFAXINE HCL [Suspect]
     Dosage: 60 CAPSULES (OVERDOSE AMOUNT 4500 MG)
     Route: 048
     Dates: start: 20060325, end: 20060325

REACTIONS (10)
  - ASPARTATE AMINOTRANSFERASE INCREASED [None]
  - BLOOD CREATINE PHOSPHOKINASE INCREASED [None]
  - BLOOD CREATINE PHOSPHOKINASE MB ABNORMAL [None]
  - CIRCULATORY COLLAPSE [None]
  - INTENTIONAL OVERDOSE [None]
  - MYDRIASIS [None]
  - MYOCLONUS [None]
  - SEROTONIN SYNDROME [None]
  - SOPOR [None]
  - SUICIDE ATTEMPT [None]
